FAERS Safety Report 5722880-X (Version None)
Quarter: 2008Q2

REPORT INFORMATION
  Report Type: 
  Country: None (occurrence: None)
  Receive Date: 20080425
  Receipt Date: 20080417
  Transmission Date: 20081010
  Serious: Yes (Other)
  Sender: FDA-Public Use
  Company Number: 08H-163-0314185-00

PATIENT
  Age: 10 Month

DRUGS (4)
  1. MORPHINE SULFATE [Suspect]
     Indication: ANALGESIA
     Dosage: 5 MG, INTRAVENOUS
     Route: 042
  2. OXYGEN (OXYGEN) [Concomitant]
  3. BUPIVACAINE [Concomitant]
  4. FENTANYL [Concomitant]

REACTIONS (4)
  - APNOEA [None]
  - BRADYCARDIA [None]
  - DISEASE RECURRENCE [None]
  - INCORRECT DOSE ADMINISTERED [None]
